FAERS Safety Report 5902281-1 (Version None)
Quarter: 2008Q3

REPORT INFORMATION
  Report Type: 
  Country: None (occurrence: None)
  Receive Date: 20080929
  Receipt Date: 20080717
  Transmission Date: 20090109
  Serious: No
  Sender: FDA-Public Use
  Company Number: US-BAUSCH-2008BL003142

PATIENT
  Age: 51 Year
  Sex: Female

DRUGS (2)
  1. ALAWAY [Suspect]
     Indication: SEASONAL ALLERGY
     Route: 047
     Dates: start: 20080714, end: 20080715
  2. DAYPRO /USA/ [Concomitant]
     Indication: ARTHRITIS

REACTIONS (1)
  - DRUG HYPERSENSITIVITY [None]
